FAERS Safety Report 6969856-2 (Version None)
Quarter: 2010Q3

REPORT INFORMATION
  Report Type: 
  Country: None (occurrence: None)
  Receive Date: 20100908
  Receipt Date: 20100830
  Transmission Date: 20110219
  Serious: No
  Sender: FDA-Public Use
  Company Number: 2009BI018644

PATIENT
  Age: 56 Year
  Sex: Female

DRUGS (1)
  1. TYSABRI [Suspect]
     Indication: MULTIPLE SCLEROSIS
     Route: 042
     Dates: start: 20090326, end: 20100722

REACTIONS (7)
  - ABNORMAL DREAMS [None]
  - BENIGN FAMILIAL PEMPHIGUS [None]
  - DIARRHOEA [None]
  - HYPERPHAGIA [None]
  - INSOMNIA [None]
  - NAUSEA [None]
  - POOR VENOUS ACCESS [None]
